FAERS Safety Report 20685758 (Version 2)
Quarter: 2022Q2

REPORT INFORMATION
  Report Type: Spontaneous
  Country: JP (occurrence: JP)
  Receive Date: 20220407
  Receipt Date: 20220531
  Transmission Date: 20220721
  Serious: Yes (Other)
  Sender: FDA-Public Use
  Company Number: JP-SUNOVION-2022DSP004007

PATIENT
  Sex: Male
  Weight: 95 kg

DRUGS (21)
  1. LATUDA [Suspect]
     Active Substance: LURASIDONE HYDROCHLORIDE
     Indication: Depressive symptom
     Dosage: 20 MG, QD
     Route: 048
     Dates: start: 20211012, end: 20211101
  2. LATUDA [Suspect]
     Active Substance: LURASIDONE HYDROCHLORIDE
     Dosage: 40 MG, QD
     Route: 048
     Dates: start: 20211102, end: 20211129
  3. LATUDA [Suspect]
     Active Substance: LURASIDONE HYDROCHLORIDE
     Dosage: 60 MG, QD
     Route: 048
     Dates: start: 20211130, end: 20220310
  4. Benzalin [Concomitant]
     Indication: Insomnia
     Dosage: 5 MG, QD
     Route: 048
     Dates: start: 20210129
  5. BELSOMRA [Concomitant]
     Active Substance: SUVOREXANT
     Indication: Insomnia
     Dosage: 20 MG, QD
     Route: 048
     Dates: start: 20210129, end: 20210608
  6. ABILIFY [Concomitant]
     Active Substance: ARIPIPRAZOLE
     Indication: Depressive symptom
     Dosage: 3 MG, QD
     Route: 048
     Dates: start: 20210129, end: 20210426
  7. ABILIFY [Concomitant]
     Active Substance: ARIPIPRAZOLE
     Dosage: 3 MG, BID
     Route: 048
     Dates: start: 20210427, end: 20210914
  8. LITHIUM CARBONATE [Concomitant]
     Active Substance: LITHIUM CARBONATE
     Indication: Bipolar disorder
     Dosage: 200 MG, BID
     Route: 048
     Dates: start: 20210301, end: 20210511
  9. MIYA-BM [Concomitant]
     Active Substance: CLOSTRIDIUM BUTYRICUM SPORES STRAIN M-55
     Indication: Irritable bowel syndrome
     Dosage: UNK UNK, TID
     Route: 048
     Dates: start: 20210315
  10. REBAMIPIDE [Concomitant]
     Active Substance: REBAMIPIDE
     Indication: Gastritis
     Dosage: 100 MG, TID
     Route: 048
     Dates: start: 20210511
  11. GASTER [Concomitant]
     Active Substance: FAMOTIDINE
     Indication: Gastritis
     Dosage: 20 MG, QD
     Route: 048
     Dates: start: 20210511
  12. VALPROATE SODIUM [Concomitant]
     Active Substance: VALPROATE SODIUM
     Indication: Bipolar disorder
     Dosage: 100 MG, BID
     Route: 048
     Dates: start: 20210525, end: 20210622
  13. LEVOMEPROMAZINE [Concomitant]
     Active Substance: LEVOMEPROMAZINE
     Indication: Insomnia
     Dosage: 10 MG, QD
     Route: 048
     Dates: start: 20210622
  14. VALPROATE SODIUM [Concomitant]
     Active Substance: VALPROATE SODIUM
     Indication: Bipolar disorder
     Dosage: 200 MG, BID
     Route: 048
     Dates: start: 20210622
  15. FLUVOXAMINE MALEATE [Concomitant]
     Active Substance: FLUVOXAMINE MALEATE
     Indication: Depressive symptom
     Dosage: 25 MG, BID
     Route: 048
     Dates: start: 20210803, end: 20210816
  16. FLUVOXAMINE MALEATE [Concomitant]
     Active Substance: FLUVOXAMINE MALEATE
     Dosage: 50 MG, BID
     Route: 048
     Dates: start: 20210817, end: 20211102
  17. AMOXAPINE [Concomitant]
     Active Substance: AMOXAPINE
     Indication: Depressive symptom
     Dosage: 10 MG, BID
     Route: 048
     Dates: start: 20210914, end: 20210927
  18. AMOXAPINE [Concomitant]
     Active Substance: AMOXAPINE
     Dosage: 20 MG, BID
     Route: 048
     Dates: start: 20210928, end: 20211012
  19. Bipresso [Concomitant]
     Indication: Depressive symptom
     Dosage: 50 MG, QD
     Route: 048
     Dates: start: 20220310, end: 20220321
  20. Bipresso [Concomitant]
     Dosage: 150 MG, QD
     Route: 048
     Dates: start: 20220322, end: 20220404
  21. Bipresso [Concomitant]
     Dosage: 300 MG, QD
     Route: 048
     Dates: start: 20220405

REACTIONS (1)
  - Renal impairment [Not Recovered/Not Resolved]
